FAERS Safety Report 20907250 (Version 2)
Quarter: 2022Q2

REPORT INFORMATION
  Report Type: Spontaneous
  Country: HN (occurrence: HN)
  Receive Date: 20220602
  Receipt Date: 20220607
  Transmission Date: 20220721
  Serious: Yes (Other)
  Sender: FDA-Public Use
  Company Number: HN-PFIZER INC-202200781692

PATIENT
  Age: 88 Year
  Sex: Male

DRUGS (1)
  1. NORVASC [Suspect]
     Active Substance: AMLODIPINE BESYLATE
     Dosage: 1 DF, DAILY
     Route: 048
     Dates: start: 2020

REACTIONS (3)
  - Amnesia [Unknown]
  - Gait disturbance [Unknown]
  - Feeling abnormal [Unknown]
